FAERS Safety Report 16298880 (Version 2)
Quarter: 2019Q4

REPORT INFORMATION
  Report Type: Spontaneous
  Country: US (occurrence: US)
  Receive Date: 20190510
  Receipt Date: 20191010
  Transmission Date: 20200122
  Serious: Yes (Death, Other)
  Sender: FDA-Public Use
  Company Number: US-BRISTOL-MYERS SQUIBB COMPANY-BMS-2019-044328

PATIENT
  Age: 87 Year
  Sex: Male
  Weight: 63.5 kg

DRUGS (2)
  1. MORPHINE [Concomitant]
     Active Substance: MORPHINE
     Indication: PRODUCT USED FOR UNKNOWN INDICATION
     Dosage: UNK
     Route: 065
  2. ELIQUIS [Suspect]
     Active Substance: APIXABAN
     Indication: DEEP VEIN THROMBOSIS
     Dosage: 1 DOSAGE FORM, BID
     Route: 048
     Dates: start: 201811, end: 20190119

REACTIONS (2)
  - Pancreatic carcinoma [Fatal]
  - Dysphagia [Unknown]

NARRATIVE: CASE EVENT DATE: 20190119
